FAERS Safety Report 8797718 (Version 1)
Quarter: 2012Q4

REPORT INFORMATION
  Report Type: 
  Country: FR (occurrence: FR)
  Receive Date: 20120920
  Receipt Date: 20120920
  Transmission Date: 20130627
  Serious: Yes (Hospitalization)
  Sender: FDA-Public Use
  Company Number: FR-009507513-1209FRA006503

PATIENT

DRUGS (1)
  1. EZETROL [Suspect]
     Indication: HYPERCHOLESTEROLAEMIA
     Dosage: 10 mg, UNK
     Dates: start: 201206

REACTIONS (3)
  - Condition aggravated [Not Recovered/Not Resolved]
  - Weight decreased [Not Recovered/Not Resolved]
  - Decreased appetite [Not Recovered/Not Resolved]
